FAERS Safety Report 12517461 (Version 1)
Quarter: 2016Q2

REPORT INFORMATION
  Report Type: Spontaneous
  Country: JP (occurrence: JP)
  Receive Date: 20160630
  Receipt Date: 20160630
  Transmission Date: 20160815
  Serious: Yes (Hospitalization, Other)
  Sender: FDA-Public Use
  Company Number: JP-ROCHE-1767770

PATIENT
  Age: 76 Year
  Sex: Female
  Weight: 46 kg

DRUGS (1)
  1. ACTEMRA [Suspect]
     Active Substance: TOCILIZUMAB
     Indication: RHEUMATOID ARTHRITIS
     Dosage: DOSAGE IS UNCERTAIN.
     Route: 041
     Dates: start: 20130530

REACTIONS (3)
  - Post procedural infection [Recovered/Resolved]
  - Impaired healing [Unknown]
  - Pelvic abscess [Recovered/Resolved]

NARRATIVE: CASE EVENT DATE: 20160318
